FAERS Safety Report 9958568 (Version 2)
Quarter: 2014Q1

REPORT INFORMATION
  Report Type: Report from Study
  Country: US (occurrence: US)
  Receive Date: 20140305
  Receipt Date: 20140324
  Transmission Date: 20141002
  Serious: Yes (Hospitalization)
  Sender: FDA-Public Use
  Company Number: US-ROCHE-1359089

PATIENT
  Sex: Male

DRUGS (2)
  1. LUCENTIS [Suspect]
     Indication: MACULAR DEGENERATION
     Dosage: RIGHT EYE
     Route: 065
  2. LUCENTIS [Suspect]
     Indication: VISUAL IMPAIRMENT
     Dosage: RIGHT EYE, ONCE IN 4-6 WEEKS
     Route: 065

REACTIONS (2)
  - Fall [Unknown]
  - Ankle fracture [Recovering/Resolving]
